FAERS Safety Report 19595856 (Version 19)
Quarter: 2022Q4

REPORT INFORMATION
  Report Type: Spontaneous
  Country: CA (occurrence: CA)
  Receive Date: 20210723
  Receipt Date: 20221217
  Transmission Date: 20230113
  Serious: Yes (Other)
  Sender: FDA-Public Use
  Company Number: CA-CELLTRION INC.-2020CA020999

PATIENT

DRUGS (26)
  1. INFLECTRA [Suspect]
     Active Substance: INFLIXIMAB-DYYB
     Indication: Colitis ulcerative
     Dosage: 300 MG, 0, 2, 6 WEEKS, THEN EVERY 8 WEEKS
     Route: 042
     Dates: start: 20200413, end: 20200728
  2. INFLECTRA [Suspect]
     Active Substance: INFLIXIMAB-DYYB
     Dosage: 300 MG, 0, 2, 6 WEEKS, THEN EVERY 8 WEEKS
     Route: 042
     Dates: start: 20200428
  3. INFLECTRA [Suspect]
     Active Substance: INFLIXIMAB-DYYB
     Dosage: 300 MG, 0, 2, 6 WEEKS, THEN EVERY 8 WEEKS
     Route: 042
     Dates: start: 20200528
  4. INFLECTRA [Suspect]
     Active Substance: INFLIXIMAB-DYYB
     Dosage: 300 MG, 0, 2, 6 WEEKS, THEN EVERY 8 WEEKS
     Route: 042
     Dates: start: 20200728
  5. INFLECTRA [Suspect]
     Active Substance: INFLIXIMAB-DYYB
     Dosage: 600 MG EVERY 8 WEEKS
     Route: 042
     Dates: start: 20200922, end: 20210504
  6. INFLECTRA [Suspect]
     Active Substance: INFLIXIMAB-DYYB
     Dosage: 600 MG EVERY 8 WEEKS
     Route: 042
     Dates: start: 20200922, end: 20210504
  7. INFLECTRA [Suspect]
     Active Substance: INFLIXIMAB-DYYB
     Dosage: 600 MG EVERY 8 WEEKS
     Route: 042
     Dates: start: 20201117, end: 20201117
  8. INFLECTRA [Suspect]
     Active Substance: INFLIXIMAB-DYYB
     Dosage: 600 MG EVERY 8 WEEKS
     Route: 042
     Dates: start: 20210504
  9. INFLECTRA [Suspect]
     Active Substance: INFLIXIMAB-DYYB
     Dosage: 600 MG EVERY 6 WEEKS
     Route: 042
     Dates: start: 20210616
  10. INFLECTRA [Suspect]
     Active Substance: INFLIXIMAB-DYYB
     Dosage: 600 MG EVERY 6 WEEKS
     Route: 042
     Dates: start: 20210727
  11. INFLECTRA [Suspect]
     Active Substance: INFLIXIMAB-DYYB
     Dosage: 600 MG EVERY 6 WEEKS
     Route: 042
     Dates: start: 20210907
  12. INFLECTRA [Suspect]
     Active Substance: INFLIXIMAB-DYYB
     Dosage: 600 MG EVERY 6 WEEKS
     Route: 042
     Dates: start: 20211019
  13. INFLECTRA [Suspect]
     Active Substance: INFLIXIMAB-DYYB
     Dosage: 600 MG, EVERY 6 WEEKS
     Route: 042
     Dates: start: 20220110
  14. INFLECTRA [Suspect]
     Active Substance: INFLIXIMAB-DYYB
     Dosage: 600 MG,EVERY 6 WEEKS
     Route: 042
     Dates: start: 20220216
  15. INFLECTRA [Suspect]
     Active Substance: INFLIXIMAB-DYYB
     Dosage: 600 MG,EVERY 6 WEEKS
     Route: 042
     Dates: start: 20220330, end: 20220330
  16. INFLECTRA [Suspect]
     Active Substance: INFLIXIMAB-DYYB
     Dosage: 600 MG ,EVERY 6 WEEKS
     Route: 042
     Dates: start: 20220513
  17. INFLECTRA [Suspect]
     Active Substance: INFLIXIMAB-DYYB
     Dosage: 600 MG ,EVERY 6 WEEKS
     Route: 042
     Dates: start: 20220623
  18. INFLECTRA [Suspect]
     Active Substance: INFLIXIMAB-DYYB
     Dosage: 600 MG ,EVERY 6 WEEKS
     Route: 042
     Dates: start: 20220803
  19. INFLECTRA [Suspect]
     Active Substance: INFLIXIMAB-DYYB
     Dosage: 600 MG ,EVERY 6 WEEKS
     Route: 042
     Dates: start: 20220914
  20. INFLECTRA [Suspect]
     Active Substance: INFLIXIMAB-DYYB
     Dosage: 600 MG ,EVERY 6 WEEKS
     Route: 042
     Dates: start: 20221027
  21. MESALAMINE [Concomitant]
     Active Substance: MESALAMINE
     Dosage: 1 DF,UNKNOWN DOSE
     Route: 065
  22. TOZINAMERAN [Concomitant]
     Active Substance: TOZINAMERAN
     Indication: COVID-19 immunisation
     Dosage: UNK (3RD DOSE)
     Dates: start: 20211020, end: 20211020
  23. CLONAZEPAM [Concomitant]
     Active Substance: CLONAZEPAM
     Dosage: 1 DF,UNKNOWN DOSE
     Route: 065
  24. PENTASA [Concomitant]
     Active Substance: MESALAMINE
     Dosage: 1 DF,DOSAGE INFORMATION NOT AVAILABLE
     Route: 065
  25. MESALAMINE [Concomitant]
     Active Substance: MESALAMINE
     Indication: Diarrhoea
     Dosage: 1 DF, WHEN PATIENT HAS DIARRHEA,SUPPOSITORY
     Route: 054
     Dates: start: 20210919
  26. CHOLECALCIFEROL [Concomitant]
     Active Substance: CHOLECALCIFEROL
     Dosage: 1 DF ,UNKNOWN DOSE
     Route: 065

REACTIONS (36)
  - Rectal haemorrhage [Recovered/Resolved]
  - Vaginal haemorrhage [Not Recovered/Not Resolved]
  - Therapeutic response shortened [Unknown]
  - Off label use [Unknown]
  - Off label use [Unknown]
  - Intentional product use issue [Unknown]
  - Drug level below therapeutic [Unknown]
  - Proctitis [Not Recovered/Not Resolved]
  - Cardiac disorder [Unknown]
  - Blood pressure systolic increased [Unknown]
  - Anal pruritus [Unknown]
  - Anorectal discomfort [Unknown]
  - Herpes zoster [Not Recovered/Not Resolved]
  - Anorectal disorder [Unknown]
  - Chromaturia [Unknown]
  - Condition aggravated [Recovering/Resolving]
  - Burning sensation [Not Recovered/Not Resolved]
  - Headache [Unknown]
  - Pain [Unknown]
  - Malaise [Unknown]
  - Dizziness [Unknown]
  - Sinusitis [Recovering/Resolving]
  - Discomfort [Unknown]
  - Irritable bowel syndrome [Not Recovered/Not Resolved]
  - Ovarian disorder [Not Recovered/Not Resolved]
  - Flatulence [Not Recovered/Not Resolved]
  - Pruritus [Not Recovered/Not Resolved]
  - Erythema [Not Recovered/Not Resolved]
  - Skin exfoliation [Not Recovered/Not Resolved]
  - Fungal infection [Not Recovered/Not Resolved]
  - Acne [Not Recovered/Not Resolved]
  - Blood urine [Not Recovered/Not Resolved]
  - Hypoacusis [Not Recovered/Not Resolved]
  - Psoriasis [Not Recovered/Not Resolved]
  - Fungal infection [Not Recovered/Not Resolved]
  - COVID-19 [Not Recovered/Not Resolved]

NARRATIVE: CASE EVENT DATE: 20200101
